FAERS Safety Report 4928936-3 (Version None)
Quarter: 2006Q1

REPORT INFORMATION
  Report Type: 
  Country: None (occurrence: None)
  Receive Date: 20060228
  Receipt Date: 20060228
  Transmission Date: 20060701
  Serious: Yes (Other)
  Sender: FDA-Public Use
  Company Number: None

PATIENT
  Age: 22 Year
  Sex: Male
  Weight: 97.5234 kg

DRUGS (1)
  1. LARIAM [Suspect]
     Indication: MALARIA PROPHYLAXIS
     Dosage: ONE PILL   ONCE PER WEEK  PO
     Route: 048
     Dates: start: 20050513, end: 20050707

REACTIONS (11)
  - ANXIETY [None]
  - DIARRHOEA [None]
  - DYSPNOEA [None]
  - FEAR [None]
  - FEELING ABNORMAL [None]
  - HALLUCINATION [None]
  - HYPERHIDROSIS [None]
  - MENTAL DISORDER [None]
  - PALPITATIONS [None]
  - PANIC ATTACK [None]
  - THINKING ABNORMAL [None]
